FAERS Safety Report 19743045 (Version 2)
Quarter: 2021Q3

REPORT INFORMATION
  Report Type: Spontaneous
  Country: US (occurrence: US)
  Receive Date: 20210825
  Receipt Date: 20210901
  Transmission Date: 20211014
  Serious: No
  Sender: FDA-Public Use
  Company Number: US-GILEAD-2021-0544714

PATIENT
  Age: 67 Year
  Sex: Male

DRUGS (1)
  1. SOFOSBUVIR;VELPATASVIR [Suspect]
     Active Substance: SOFOSBUVIR\VELPATASVIR
     Indication: HEPATITIS C
     Dosage: 400/100MG ONCE DAILY
     Route: 048
     Dates: start: 20210707

REACTIONS (3)
  - Fatigue [Not Recovered/Not Resolved]
  - COVID-19 [Unknown]
  - Intentional product use issue [Recovered/Resolved]
